FAERS Safety Report 5929203-1 (Version None)
Quarter: 2008Q4

REPORT INFORMATION
  Report Type: 
  Country: None (occurrence: None)
  Receive Date: 20081020
  Receipt Date: 20081006
  Transmission Date: 20090506
  Serious: Yes (Hospitalization)
  Sender: FDA-Public Use
  Company Number: FR-1167473

PATIENT
  Age: 25 Year
  Sex: Male

DRUGS (4)
  1. TOBREX [Suspect]
     Indication: NASOPHARYNGITIS
     Dosage: 1 GTT 5X/DAY
     Route: 047
     Dates: start: 20080915, end: 20080918
  2. ACETAMINOPHEN [Concomitant]
  3. RHINOFLUIMUCIL (RHINOFLUIMUCIL) [Concomitant]
  4. THIOVALONE (THIOVALONE) [Concomitant]

REACTIONS (15)
  - CHEST PAIN [None]
  - CONJUNCTIVITIS [None]
  - CYTOLYTIC HEPATITIS [None]
  - ERYSIPELAS [None]
  - ERYTHEMA [None]
  - HYPERSENSITIVITY [None]
  - KERATITIS [None]
  - LYMPHADENOPATHY [None]
  - LYMPHOPENIA [None]
  - PRURIGO [None]
  - PURPURA [None]
  - PYREXIA [None]
  - RASH MACULAR [None]
  - TOXIC SKIN ERUPTION [None]
  - VISION BLURRED [None]
